FAERS Safety Report 4305132-4 (Version None)
Quarter: 2004Q1

REPORT INFORMATION
  Report Type: 
  Country: None (occurrence: None)
  Receive Date: 20040223
  Receipt Date: 20031204
  Transmission Date: 20041129
  Serious: No
  Sender: FDA-Public Use
  Company Number: SU-2003-001945

PATIENT
  Age: 53 Year
  Sex: Male
  Weight: 113.3993 kg

DRUGS (4)
  1. BENICAR [Suspect]
     Indication: HYPERTENSION
     Dosage: 40 MG QD PO
     Route: 048
     Dates: start: 20031121, end: 20031203
  2. LISINOPRIL [Concomitant]
  3. TESTOSTERONE [Concomitant]
  4. PROGESTERONE [Concomitant]

REACTIONS (1)
  - DRUG INEFFECTIVE [None]
